FAERS Safety Report 11154507 (Version 1)
Quarter: 2015Q2

REPORT INFORMATION
  Report Type: Spontaneous
  Country: US (occurrence: US)
  Receive Date: 20150602
  Receipt Date: 20150602
  Transmission Date: 20150821
  Serious: No
  Sender: FDA-Public Use
  Company Number: US-NOVEN PHARMACEUTICALS, INC.-15US013245

PATIENT
  Age: 9 Year
  Sex: Male

DRUGS (1)
  1. DAYTRANA [Suspect]
     Active Substance: METHYLPHENIDATE
     Indication: ATTENTION DEFICIT/HYPERACTIVITY DISORDER
     Dosage: 10 MG, DAILY
     Route: 062
     Dates: start: 2014, end: 201412

REACTIONS (3)
  - Application site pain [Recovering/Resolving]
  - Application site erythema [Recovering/Resolving]
  - Application site vesicles [Recovering/Resolving]

NARRATIVE: CASE EVENT DATE: 20141225
